FAERS Safety Report 4674000-0 (Version None)
Quarter: 2005Q2

REPORT INFORMATION
  Report Type: 
  Country: None (occurrence: None)
  Receive Date: 20050525
  Receipt Date: 20050510
  Transmission Date: 20051028
  Serious: Yes (Hospitalization)
  Sender: FDA-Public Use
  Company Number: 20050401VANCO0100

PATIENT
  Age: 85 Year
  Sex: Male
  Weight: 38 kg

DRUGS (8)
  1. VANCOMYCIN HCL [Suspect]
     Indication: CLOSTRIDIUM COLITIS
     Dosage: 2000 MG (500 MG, FOUR TIMES DAILY), ORAL
     Route: 048
     Dates: start: 20050131, end: 20050205
  2. FOSFOMYCIN S (FOSFOMYCIN SODIUM) [Concomitant]
  3. CEFOPERAZONE SODIUM/SULBACTAM SODIUM (SULPERAZON) [Concomitant]
  4. CLINDAMYCIN [Concomitant]
  5. CEFEPIME DIHYDROHCLORIDE (CEFEPIME HYDROCHLORIDE) [Concomitant]
  6. MINOCYCLINE HYDROCHLORIDE [Concomitant]
  7. AMINOFLUID (AMINOFLUID) [Concomitant]
  8. VITAMEDIN INTRAVENOUS (VITAMEDIN INTRAVENOUS) [Concomitant]

REACTIONS (7)
  - ALANINE AMINOTRANSFERASE INCREASED [None]
  - ASPARTATE AMINOTRANSFERASE INCREASED [None]
  - BACTERIA STOOL IDENTIFIED [None]
  - BLOOD ALKALINE PHOSPHATASE INCREASED [None]
  - BLOOD LACTATE DEHYDROGENASE INCREASED [None]
  - GAMMA-GLUTAMYLTRANSFERASE INCREASED [None]
  - HEPATIC FUNCTION ABNORMAL [None]
